FAERS Safety Report 4714311-3 (Version None)
Quarter: 2005Q3

REPORT INFORMATION
  Report Type: 
  Country: None (occurrence: None)
  Receive Date: 20050714
  Receipt Date: 20050413
  Transmission Date: 20060218
  Serious: Yes (Hospitalization)
  Sender: FDA-Public Use
  Company Number: US-MERCK-0504USA02131

PATIENT
  Age: 43 Year
  Sex: Female
  Weight: 100 kg

DRUGS (6)
  1. VIOXX [Suspect]
     Indication: ARTHRALGIA
     Route: 048
     Dates: start: 19991101, end: 20000801
  2. VIOXX [Suspect]
     Route: 048
     Dates: start: 20040801, end: 20040801
  3. LIPITOR [Concomitant]
     Indication: BLOOD CHOLESTEROL INCREASED
     Route: 065
     Dates: start: 19950101
  4. SYNTHROID [Concomitant]
     Indication: THYROID DISORDER
     Route: 065
  5. PREVACID [Concomitant]
     Indication: DYSPEPSIA
     Route: 065
  6. HORMONAL CONTRACEPTIVES (UNSPECIFIED) [Concomitant]
     Route: 065

REACTIONS (4)
  - ADVERSE EVENT [None]
  - INJURY [None]
  - PULMONARY EMBOLISM [None]
  - SLEEP APNOEA SYNDROME [None]
